FAERS Safety Report 15899589 (Version 1)
Quarter: 2019Q1

REPORT INFORMATION
  Report Type: Spontaneous
  Country: US (occurrence: US)
  Receive Date: 20190201
  Receipt Date: 20190201
  Transmission Date: 20190417
  Serious: No
  Sender: FDA-Public Use
  Company Number: US-PFIZER INC-2018359420

PATIENT
  Age: 75 Year
  Sex: Male
  Weight: 113 kg

DRUGS (2)
  1. LYRICA [Suspect]
     Active Substance: PREGABALIN
     Indication: NEUROPATHY PERIPHERAL
     Dosage: 50 MG, 3X/DAY
     Route: 048
     Dates: start: 20181026
  2. LYRICA [Suspect]
     Active Substance: PREGABALIN
     Indication: POLYNEUROPATHY
     Dosage: 4 DF, 1X/DAY (INCREASE IT TO TAKE 2 IN THE MORNING AND 2 AT NIGHT)

REACTIONS (2)
  - Insomnia [Unknown]
  - Product use issue [Unknown]
